FAERS Safety Report 20548254 (Version 2)
Quarter: 2022Q2

REPORT INFORMATION
  Report Type: Report from Study
  Country: US (occurrence: US)
  Receive Date: 20220303
  Receipt Date: 20220418
  Transmission Date: 20220720
  Serious: Yes (Other)
  Sender: FDA-Public Use
  Company Number: US-ABBVIE-22K-163-4232516-00

PATIENT
  Sex: Male
  Weight: 65.149 kg

DRUGS (1)
  1. HUMIRA [Suspect]
     Active Substance: ADALIMUMAB
     Indication: Product used for unknown indication
     Route: 058

REACTIONS (8)
  - Hip arthroplasty [Not Recovered/Not Resolved]
  - Osteonecrosis [Unknown]
  - Hernia [Unknown]
  - Cartilage injury [Unknown]
  - Musculoskeletal disorder [Unknown]
  - Testicular pain [Unknown]
  - Arthralgia [Unknown]
  - Stenosis [Unknown]

NARRATIVE: CASE EVENT DATE: 20190101
